FAERS Safety Report 25389262 (Version 1)
Quarter: 2025Q2

REPORT INFORMATION
  Report Type: Spontaneous
  Country: CN (occurrence: CN)
  Receive Date: 20250603
  Receipt Date: 20250603
  Transmission Date: 20250717
  Serious: Yes (Other)
  Sender: Kenvue
  Company Number: CN-KENVUE-20250600401

PATIENT

DRUGS (4)
  1. TYLENOL [Suspect]
     Active Substance: ACETAMINOPHEN
     Indication: Analgesic therapy
     Route: 048
     Dates: start: 20250523
  2. TYLENOL [Suspect]
     Active Substance: ACETAMINOPHEN
     Indication: Gingivitis
  3. BOS TAURUS GALLSTONE\METRONIDAZOLE [Suspect]
     Active Substance: BOS TAURUS GALLSTONE\METRONIDAZOLE
     Indication: Infection
     Route: 048
     Dates: start: 20250523
  4. BOS TAURUS GALLSTONE\METRONIDAZOLE [Suspect]
     Active Substance: BOS TAURUS GALLSTONE\METRONIDAZOLE
     Indication: Gingivitis

REACTIONS (3)
  - Agitation [Recovering/Resolving]
  - Vomiting [Recovering/Resolving]
  - Erythema [Recovering/Resolving]

NARRATIVE: CASE EVENT DATE: 20250523
